FAERS Safety Report 9679086 (Version 3)
Quarter: 2014Q1

REPORT INFORMATION
  Report Type: Spontaneous
  Country: JP (occurrence: JP)
  Receive Date: 20131108
  Receipt Date: 20140102
  Transmission Date: 20141002
  Serious: Yes (Hospitalization, Other)
  Sender: FDA-Public Use
  Company Number: JP-ROCHE-1297692

PATIENT
  Age: 54 Year
  Sex: Female
  Weight: 54 kg

DRUGS (16)
  1. HERCEPTIN [Suspect]
     Indication: BREAST CANCER
     Route: 041
     Dates: start: 20120518, end: 20131018
  2. PERJETA [Suspect]
     Indication: BREAST CANCER
     Dosage: STRENGTH : 420 MG/14 ML
     Route: 041
     Dates: start: 20130927, end: 20130927
  3. PERJETA [Suspect]
     Indication: BREAST CANCER
     Dosage: STRENGTH : 420 MG/14 ML
     Route: 041
     Dates: start: 20131018, end: 20131018
  4. ONETAXOTERE [Suspect]
     Indication: BREAST CANCER
     Dosage: ON 18/OCT/2013 MOST RECENT DOSE GIVEN
     Route: 042
     Dates: start: 20130927
  5. FARMORUBICIN [Suspect]
     Indication: BREAST CANCER
     Route: 065
  6. GRANISETRON [Concomitant]
     Indication: PROPHYLAXIS
     Route: 041
     Dates: start: 20130927, end: 20131018
  7. DECADRON [Concomitant]
     Indication: PROPHYLAXIS
     Route: 041
     Dates: start: 20130927, end: 20131018
  8. LYRICA [Concomitant]
     Indication: NEUROPATHY PERIPHERAL
     Route: 048
  9. METHYCOBAL [Concomitant]
     Indication: NEUROPATHY PERIPHERAL
     Route: 048
  10. MEILAX [Concomitant]
     Indication: ANXIETY
     Route: 048
  11. MAGMITT [Concomitant]
     Indication: CONSTIPATION
     Route: 048
  12. PROTECADIN [Concomitant]
     Indication: GASTRIC ULCER
     Route: 048
  13. LAXOBERON [Concomitant]
     Indication: CONSTIPATION
     Route: 048
  14. UREPEARL [Concomitant]
     Indication: XERODERMA
     Dosage: DOSAGE IS UNCERTAIN.
     Route: 003
  15. TAXOL [Concomitant]
     Indication: BREAST CANCER
     Route: 041
     Dates: start: 20120518, end: 20120719
  16. HALAVEN [Concomitant]
     Indication: BREAST CANCER
     Route: 041
     Dates: start: 20130802, end: 20130913

REACTIONS (3)
  - Interstitial lung disease [Recovered/Resolved]
  - Febrile neutropenia [Recovered/Resolved]
  - Cardiac failure [Recovering/Resolving]
